FAERS Safety Report 6175561-5 (Version None)
Quarter: 2009Q2

REPORT INFORMATION
  Report Type: 
  Country: None (occurrence: None)
  Receive Date: 20090501
  Receipt Date: 20090421
  Transmission Date: 20091009
  Serious: Yes (Hospitalization)
  Sender: FDA-Public Use
  Company Number: US-JNJFOC-20090406859

PATIENT
  Age: 14 Month
  Sex: Female

DRUGS (7)
  1. IBUPROFEN [Suspect]
     Indication: PYREXIA
  2. ACETAMINOPHEN [Suspect]
  3. ACETAMINOPHEN [Suspect]
     Indication: PYREXIA
  4. CEFTRIAXONE [Concomitant]
  5. LORAZEPAM [Concomitant]
     Indication: CONVULSION
  6. PHENYTOIN [Concomitant]
  7. PHENOBARBITAL [Concomitant]
     Indication: CONVULSION

REACTIONS (1)
  - RENAL FAILURE ACUTE [None]
